FAERS Safety Report 19578102 (Version 5)
Quarter: 2021Q3

REPORT INFORMATION
  Report Type: Other
  Country: KR (occurrence: KR)
  Receive Date: 20210719
  Receipt Date: 20210921
  Transmission Date: 20211014
  Serious: Yes (Hospitalization)
  Sender: FDA-Public Use
  Company Number: KR-ROCHE-2870558

PATIENT
  Age: 57 Year
  Sex: Female

DRUGS (13)
  1. CELEBREX [Concomitant]
     Active Substance: CELECOXIB
     Route: 048
     Dates: start: 20200429, end: 20200526
  2. MORPHINE SULFATE. [Concomitant]
     Active Substance: MORPHINE SULFATE
     Route: 042
     Dates: start: 20201027, end: 20201028
  3. TRIDOL [Concomitant]
     Active Substance: TRAMADOL HYDROCHLORIDE
     Route: 042
     Dates: start: 20201026, end: 20201026
  4. MEGACE ORAL SUSPENSION [Concomitant]
     Route: 048
     Dates: start: 20201117, end: 20201124
  5. IRCODON [Concomitant]
     Active Substance: OXYCODONE HYDROCHLORIDE
     Route: 048
     Dates: start: 20200429, end: 20200526
  6. LYRICA [Concomitant]
     Active Substance: PREGABALIN
     Indication: PARAESTHESIA
     Dosage: POLYNEUROPATHY  IN NEOPLASTIC DISEASE
     Route: 048
     Dates: start: 20200429, end: 20200526
  7. DEXAMETHASONE. [Concomitant]
     Active Substance: DEXAMETHASONE
     Route: 048
     Dates: start: 20200217, end: 20201117
  8. LANSTON LFDT [Concomitant]
     Active Substance: LANSOPRAZOLE
     Route: 048
     Dates: start: 20200707, end: 20200727
  9. TRASTUZUMAB EMTANSINE [Suspect]
     Active Substance: ADO-TRASTUZUMAB EMTANSINE
     Indication: BREAST CANCER
     Dosage: DATE OF TREATMENT: 10/MAR/2020, 31/MAR/2020, 04/MAY/2020, 26/MAY/2020, 16/JUN/2020, 07/JUL/2020, 28/
     Route: 042
     Dates: start: 20200217
  10. DEXAMETHASONE DISODIUM PHOSPHATE [Concomitant]
     Active Substance: DEXAMETHASONE SODIUM PHOSPHATE
     Route: 042
     Dates: start: 20200731, end: 20200911
  11. MAGMIL [Concomitant]
     Active Substance: MAGNESIUM HYDROXIDE
     Indication: CONSTIPATION
     Route: 048
     Dates: start: 20200819
  12. PETHIDINE HCL [Concomitant]
     Route: 042
     Dates: start: 20201026, end: 20201026
  13. CYMBALTA [Concomitant]
     Active Substance: DULOXETINE HYDROCHLORIDE
     Indication: PARAESTHESIA
     Dosage: POLYNEUROPATHY IN NEOPLASTIC DISEASE
     Route: 048
     Dates: start: 20201005, end: 20201025

REACTIONS (10)
  - Rash [Recovering/Resolving]
  - Constipation [Recovered/Resolved]
  - Pleural effusion [Recovered/Resolved]
  - Eye pain [Recovering/Resolving]
  - Dyspnoea exertional [Recovered/Resolved]
  - Headache [Recovering/Resolving]
  - Chest pain [Recovering/Resolving]
  - Paraesthesia [Recovered/Resolved]
  - Hypoaesthesia [Recovered/Resolved]
  - Dyspepsia [Recovering/Resolving]

NARRATIVE: CASE EVENT DATE: 20200331
